FAERS Safety Report 25616246 (Version 1)
Quarter: 2025Q3

REPORT INFORMATION
  Report Type: Other
  Country: EU (occurrence: EU)
  Receive Date: 20250729
  Receipt Date: 20250729
  Transmission Date: 20251021
  Serious: Yes (Other)
  Sender: INNOGENIX, LLC
  Company Number: EU-Innogenix, LLC-2181408

PATIENT
  Age: 6 Decade
  Sex: Male

DRUGS (4)
  1. HALOPERIDOL [Suspect]
     Active Substance: HALOPERIDOL
     Indication: Hallucination
  2. HALOPERIDOL [Suspect]
     Active Substance: HALOPERIDOL
     Indication: Delirium
  3. HALOPERIDOL [Suspect]
     Active Substance: HALOPERIDOL
     Indication: Insomnia
  4. POSACONAZOLE [Interacting]
     Active Substance: POSACONAZOLE

REACTIONS (4)
  - Hypoventilation [Unknown]
  - Product use in unapproved indication [Unknown]
  - Drug interaction [Unknown]
  - Hypercapnia [Unknown]
